FAERS Safety Report 5702723-0 (Version None)
Quarter: 2008Q2

REPORT INFORMATION
  Report Type: 
  Country: None (occurrence: None)
  Receive Date: 20080411
  Receipt Date: 20080401
  Transmission Date: 20081010
  Serious: Yes (Other)
  Sender: FDA-Public Use
  Company Number: B0361305A

PATIENT
  Sex: Female

DRUGS (12)
  1. PAROXETINE HCL [Suspect]
     Indication: DEPRESSION
     Route: 065
     Dates: start: 19951121
  2. DIAZEPAM [Concomitant]
     Dates: start: 19900602
  3. AMITRIPTYLINE HCL [Concomitant]
     Dates: start: 20020329
  4. TOPIRAMATE [Concomitant]
  5. CETIRIZINE HCL [Concomitant]
  6. VALPROATE SODIUM [Concomitant]
  7. FROVATRIPTAN [Concomitant]
  8. METOCLOPRAMIDE [Concomitant]
  9. ESOMEPRAZOLE [Concomitant]
  10. MEBEVERINE [Concomitant]
  11. FYBOGEL-ISPHAGULA [Concomitant]
  12. FLUOXETINE [Concomitant]

REACTIONS (17)
  - ABDOMINAL DISCOMFORT [None]
  - ABDOMINAL PAIN UPPER [None]
  - CRYING [None]
  - DIARRHOEA [None]
  - DRUG WITHDRAWAL SYNDROME [None]
  - EMOTIONAL DISORDER [None]
  - HEADACHE [None]
  - HOT FLUSH [None]
  - HYPERHIDROSIS [None]
  - IRRITABILITY [None]
  - MALAISE [None]
  - MIGRAINE [None]
  - NASOPHARYNGITIS [None]
  - NAUSEA [None]
  - PRURITUS [None]
  - SNEEZING [None]
  - SUICIDAL IDEATION [None]
